FAERS Safety Report 7138143-4 (Version None)
Quarter: 2010Q4

REPORT INFORMATION
  Report Type: 
  Country: None (occurrence: None)
  Receive Date: 20101206
  Receipt Date: 20101124
  Transmission Date: 20110411
  Serious: Yes (Life-Threatening, Other)
  Sender: FDA-Public Use
  Company Number: ES-SANOFI-AVENTIS-2010SA071673

PATIENT
  Age: 70 Year
  Sex: Female

DRUGS (2)
  1. DRONEDARONE [Suspect]
     Indication: ATRIAL FIBRILLATION
     Dosage: DOSE:1 UNIT(S)
     Route: 048
     Dates: start: 20100101, end: 20100101
  2. SINTROM [Concomitant]

REACTIONS (2)
  - CARDIAC ARREST [None]
  - MALAISE [None]
